FAERS Safety Report 4941882-4 (Version None)
Quarter: 2006Q1

REPORT INFORMATION
  Report Type: 
  Country: None (occurrence: None)
  Receive Date: 20060308
  Receipt Date: 20060131
  Transmission Date: 20060701
  Serious: Yes (Disabling)
  Sender: FDA-Public Use
  Company Number: 2006016558

PATIENT
  Sex: Female
  Weight: 58.9676 kg

DRUGS (1)
  1. NEURONTIN [Suspect]
     Indication: FIBROMYALGIA
     Dosage: UNKNOWN
     Route: 065
     Dates: start: 20010601

REACTIONS (2)
  - DEPRESSION [None]
  - DRUG INEFFECTIVE [None]
